FAERS Safety Report 25319754 (Version 1)
Quarter: 2025Q2

REPORT INFORMATION
  Report Type: Spontaneous
  Country: US (occurrence: None)
  Receive Date: 20250515
  Receipt Date: 20250515
  Transmission Date: 20250716
  Serious: No
  Sender: FDA-CTU
  Company Number: None

PATIENT
  Sex: Male

DRUGS (2)
  1. DUPIXENT [Suspect]
     Active Substance: DUPILUMAB
     Indication: Asthma
     Route: 058
     Dates: start: 20250420, end: 20250420
  2. DUPIXENT [Concomitant]
     Active Substance: DUPILUMAB
     Dates: start: 20250408, end: 20250420

REACTIONS (6)
  - Vision blurred [None]
  - Oropharyngeal pain [None]
  - Headache [None]
  - Dyspnoea [None]
  - Pneumonitis [None]
  - Ageusia [None]
